FAERS Safety Report 4649041-X (Version None)
Quarter: 2005Q2

REPORT INFORMATION
  Report Type: 
  Country: None (occurrence: None)
  Receive Date: 20050429
  Receipt Date: 20050420
  Transmission Date: 20051028
  Serious: Yes (Other)
  Sender: FDA-Public Use
  Company Number: US-ROCHE-402733

PATIENT
  Age: 67 Year
  Sex: Male
  Weight: 61.7 kg

DRUGS (2)
  1. PEGASYS [Suspect]
     Route: 058
     Dates: start: 20040901, end: 20050215
  2. COPEGUS [Suspect]
     Dosage: 2 X AM, 2 X PM.
     Route: 048
     Dates: start: 20040901, end: 20050215

REACTIONS (7)
  - ASTHENIA [None]
  - BLOOD URINE PRESENT [None]
  - FATIGUE [None]
  - GASTROENTERITIS RADIATION [None]
  - PROSTATE CANCER [None]
  - WEIGHT DECREASED [None]
  - WHITE BLOOD CELL COUNT DECREASED [None]
